FAERS Safety Report 6994078-9 (Version None)
Quarter: 2010Q3

REPORT INFORMATION
  Report Type: 
  Country: None (occurrence: None)
  Receive Date: 20100917
  Receipt Date: 20070725
  Transmission Date: 20110219
  Serious: No
  Sender: FDA-Public Use
  Company Number: US-ASTRAZENECA-2007UW02144

PATIENT
  Age: 562 Month
  Sex: Male
  Weight: 99.3 kg

DRUGS (11)
  1. SEROQUEL [Suspect]
     Indication: BIPOLAR DISORDER
     Route: 048
     Dates: start: 20020101, end: 20060501
  2. SEROQUEL [Suspect]
     Dosage: 25-600 MG
     Route: 048
     Dates: start: 20030728
  3. ABILIFY [Concomitant]
     Dates: start: 20060101
  4. RISPERDAL [Concomitant]
     Dates: start: 20030101
  5. ZYPREXA/SYMBYAX (OLANZAPINE) [Concomitant]
     Dates: start: 20030101
  6. ZYPREXA/SYMBYAX (OLANZAPINE) [Concomitant]
     Dates: start: 20031002
  7. TRAZODONE HCL [Concomitant]
     Dates: start: 20030711
  8. WELLBUTRIN SR [Concomitant]
     Indication: BIPOLAR DISORDER
     Dates: start: 20030728
  9. CELEXA [Concomitant]
     Dates: start: 20031002
  10. PROZAC [Concomitant]
     Indication: BIPOLAR DISORDER
     Dates: start: 20040916
  11. ATIVAN [Concomitant]
     Dates: start: 20030509

REACTIONS (2)
  - OBESITY [None]
  - TYPE 2 DIABETES MELLITUS [None]
